FAERS Safety Report 4362238-1 (Version None)
Quarter: 2004Q2

REPORT INFORMATION
  Report Type: 
  Country: None (occurrence: None)
  Receive Date: 20040517
  Receipt Date: 20040507
  Transmission Date: 20050107
  Serious: Yes (Hospitalization)
  Sender: FDA-Public Use
  Company Number: US-JNJFOC-20040501568

PATIENT
  Age: 72 Year
  Sex: Female

DRUGS (16)
  1. INFLIXIMAB (INFLIXIMAB, RECOMBINANT) LYOPHILIZED POWDER [Suspect]
     Indication: RHEUMATOID ARTHRITIS
     Dosage: INTRAVENOUS
     Route: 042
     Dates: start: 20010420
  2. HEPARIN [Suspect]
     Indication: DEEP VEIN THROMBOSIS
  3. PAXIL [Concomitant]
  4. PREDNISONE [Concomitant]
  5. PREVACID [Concomitant]
  6. METHOTREXATE [Concomitant]
  7. ELAVIL [Concomitant]
  8. TOPROL-XL [Concomitant]
  9. RELAFEN [Concomitant]
  10. SYNTHROID [Concomitant]
  11. MIACALCIN [Concomitant]
  12. FOSAMAX [Concomitant]
  13. VITAMIN E [Concomitant]
  14. AZMACORT [Concomitant]
  15. VITAMIN C (ASCORBIC ACID) [Concomitant]
  16. GLUCOSAMINE/CHONDROITIN (GLUCOSAMINE W/CHONDROITIN SULFATES) [Concomitant]

REACTIONS (4)
  - CHRONIC OBSTRUCTIVE AIRWAYS DISEASE EXACERBATED [None]
  - HAEMATOCRIT DECREASED [None]
  - INJECTION SITE HAEMORRHAGE [None]
  - LOBAR PNEUMONIA [None]
